FAERS Safety Report 5158003-8 (Version None)
Quarter: 2006Q4

REPORT INFORMATION
  Report Type: 
  Country: None (occurrence: None)
  Receive Date: 20061116
  Receipt Date: 20061103
  Transmission Date: 20070319
  Serious: Yes (Hospitalization, Other)
  Sender: FDA-Public Use
  Company Number: 2006134935

PATIENT
  Sex: Male
  Weight: 78 kg

DRUGS (2)
  1. VFEND [Suspect]
     Indication: ASPERGILLOSIS
  2. COMBIVENT [Concomitant]

REACTIONS (7)
  - BLOOD GASES ABNORMAL [None]
  - BLOOD PH ABNORMAL [None]
  - LABORATORY TEST ABNORMAL [None]
  - PHOTOSENSITIVITY REACTION [None]
  - PULSE ABSENT [None]
  - RASH [None]
  - RESPIRATORY FAILURE [None]
